FAERS Safety Report 12374720 (Version 12)
Quarter: 2019Q1

REPORT INFORMATION
  Report Type: Spontaneous
  Country: US (occurrence: US)
  Receive Date: 20160517
  Receipt Date: 20190111
  Transmission Date: 20190417
  Serious: Yes (Other)
  Sender: FDA-Public Use
  Company Number: US-PFIZER INC-2016236615

PATIENT
  Age: 53 Year
  Sex: Male
  Weight: 133.8 kg

DRUGS (7)
  1. LYRICA [Suspect]
     Active Substance: PREGABALIN
     Dosage: 150 MG, 3X/DAY
     Route: 048
     Dates: end: 201809
  2. OXYCODONE [Suspect]
     Active Substance: OXYCODONE
     Indication: PHANTOM PAIN
     Dosage: 30 MG, UNK
     Route: 048
     Dates: start: 2017
  3. LYRICA [Suspect]
     Active Substance: PREGABALIN
     Dosage: 150 MG, 3X/DAY
     Dates: start: 201604
  4. LYRICA [Suspect]
     Active Substance: PREGABALIN
     Indication: NEURALGIA
     Dosage: 75 MG, 3X/DAY
     Route: 048
     Dates: start: 20160225
  5. OXYCODONE [Suspect]
     Active Substance: OXYCODONE
     Indication: PAIN
  6. LYRICA [Suspect]
     Active Substance: PREGABALIN
     Indication: PHANTOM PAIN
     Dosage: 150 MG, 2X/DAY
     Route: 048
  7. OXYCODONE [Suspect]
     Active Substance: OXYCODONE
     Indication: NEURALGIA
     Dosage: 30 MG, AS NEEDED
     Route: 048
     Dates: start: 20151022

REACTIONS (13)
  - Suicidal ideation [Unknown]
  - Neuralgia [Not Recovered/Not Resolved]
  - Increased appetite [Unknown]
  - Peripheral swelling [Unknown]
  - Fungal infection [Unknown]
  - Swelling [Not Recovered/Not Resolved]
  - Drug effect incomplete [Unknown]
  - Pain [Unknown]
  - Weight increased [Unknown]
  - Burning sensation [Not Recovered/Not Resolved]
  - Insomnia [Unknown]
  - Somnolence [Unknown]
  - Condition aggravated [Not Recovered/Not Resolved]
